FAERS Safety Report 9559544 (Version 1)
Quarter: 2013Q3

REPORT INFORMATION
  Report Type: Spontaneous
  Country: US (occurrence: None)
  Receive Date: 20130906
  Receipt Date: 20130906
  Transmission Date: 20140515
  Serious: Yes (Other)
  Sender: FDA-Public Use
  Company Number: 163-POMAL-13071433

PATIENT
  Age: 82 Year
  Sex: Female
  Weight: 73.94 kg

DRUGS (10)
  1. POMALYST (POMALIDOMIDE) (4 MILLIGRAM, CAPSULES) [Suspect]
     Indication: PLASMA CELL MYELOMA
     Dosage: 4 MG, 21 IN 28 D, PO
     Route: 048
     Dates: start: 20130402, end: 20130621
  2. DOXEPIN (DOXEPIN) (DOXEPIN) [Concomitant]
  3. RESTORIL (TEMAZEPAM) [Concomitant]
  4. FUROSEMIDE (FUROSEMIDE) [Concomitant]
  5. ASPIRIN (ACETYLSALICYLIC ACID) [Concomitant]
  6. HYDROCODONE (HYDROCODONE) [Concomitant]
  7. VELCADE (BORTEZOMIB) [Concomitant]
  8. ZOMETA (ZOLEDRONIC ACID) [Concomitant]
  9. DEXAMETHASONE (DEXAMETHASONE) [Concomitant]
  10. CARFILZOMIB (CARFILZOMIB) [Concomitant]

REACTIONS (3)
  - Dizziness [None]
  - Pyrexia [None]
  - Tremor [None]
